FAERS Safety Report 15241776 (Version 2)
Quarter: 2018Q3

REPORT INFORMATION
  Report Type: Report from Study
  Country: None (occurrence: US)
  Receive Date: 20180805
  Receipt Date: 20180806
  Transmission Date: 20181010
  Serious: Yes (Other)
  Sender: FDA-Public Use
  Company Number: US-ABBVIE-18K-163-2440515-00

PATIENT
  Sex: Female

DRUGS (1)
  1. HUMIRA [Suspect]
     Active Substance: ADALIMUMAB
     Indication: RHEUMATOID ARTHRITIS
     Route: 058

REACTIONS (6)
  - Joint swelling [Unknown]
  - Accident at work [Unknown]
  - Musculoskeletal discomfort [Unknown]
  - Joint stiffness [Unknown]
  - Arthralgia [Unknown]
  - Joint injury [Unknown]
